FAERS Safety Report 8799390 (Version 1)
Quarter: 2012Q4

REPORT INFORMATION
  Report Type: 
  Country: US (occurrence: US)
  Receive Date: 20120919
  Receipt Date: 20120919
  Transmission Date: 20130627
  Serious: No
  Sender: FDA-Public Use
  Company Number: US-BAYER-2012-095751

PATIENT
  Sex: Female

DRUGS (1)
  1. MIRENA [Suspect]
     Dosage: 20 mcg/24hr, CONT
     Route: 015
     Dates: start: 201111

REACTIONS (8)
  - Mood swings [None]
  - Libido decreased [None]
  - Menorrhagia [None]
  - Coital bleeding [Not Recovered/Not Resolved]
  - Dyspareunia [None]
  - Abdominal pain [Not Recovered/Not Resolved]
  - Medical device discomfort [None]
  - Medical device complication [Not Recovered/Not Resolved]
